FAERS Safety Report 23982133 (Version 1)
Quarter: 2024Q2

REPORT INFORMATION
  Report Type: Spontaneous
  Country: US (occurrence: US)
  Receive Date: 20240617
  Receipt Date: 20240617
  Transmission Date: 20240717
  Serious: No
  Sender: FDA-Public Use
  Company Number: US-Merck Healthcare KGaA-2024031561

PATIENT
  Age: 40 Year
  Sex: Female
  Weight: 107 kg

DRUGS (1)
  1. MAVENCLAD [Suspect]
     Active Substance: CLADRIBINE
     Indication: Multiple sclerosis
     Dosage: FIRST CYCLE
     Dates: start: 20240511

REACTIONS (2)
  - Tachycardia [Unknown]
  - Dyspnoea [Unknown]
